FAERS Safety Report 4881651-7 (Version None)
Quarter: 2006Q1

REPORT INFORMATION
  Report Type: 
  Country: None (occurrence: None)
  Receive Date: 20060112
  Receipt Date: 20060104
  Transmission Date: 20060701
  Serious: Yes (Death, Hospitalization)
  Sender: FDA-Public Use
  Company Number: 2005BI022140

PATIENT
  Age: 63 Year
  Sex: Male

DRUGS (16)
  1. AVONEX [Suspect]
     Indication: MULTIPLE SCLEROSIS
     Dosage: 30 UG;QW;IM
     Route: 030
     Dates: start: 19981001, end: 19990301
  2. AVONEX [Suspect]
     Indication: MULTIPLE SCLEROSIS
     Dosage: 30 UG;QW;IM
     Route: 030
     Dates: start: 20050628, end: 20050926
  3. PROVIGIL [Concomitant]
  4. SINEMET [Concomitant]
  5. REQUIP [Concomitant]
  6. AMANTADINE HCL [Concomitant]
  7. TARCEVA [Concomitant]
  8. FLUDROCORTISONE [Concomitant]
  9. MEGESTROL [Concomitant]
  10. ZOLOFT [Concomitant]
  11. ANDRODERM [Concomitant]
  12. SENNA [Concomitant]
  13. LASIX [Concomitant]
  14. OXYCONTIN [Concomitant]
  15. GABAPENTIN [Concomitant]
  16. MEDICATION [Concomitant]

REACTIONS (1)
  - LUNG CANCER METASTATIC [None]
